FAERS Safety Report 4638142-8 (Version None)
Quarter: 2005Q2

REPORT INFORMATION
  Report Type: 
  Country: None (occurrence: None)
  Receive Date: 20050415
  Receipt Date: 20050404
  Transmission Date: 20051028
  Serious: Yes (Hospitalization, Other)
  Sender: FDA-Public Use
  Company Number: 2005045129

PATIENT
  Age: 67 Year
  Sex: Female
  Weight: 86.1834 kg

DRUGS (7)
  1. AROMASIN [Suspect]
     Indication: BREAST CANCER
     Dates: start: 20041227, end: 20050204
  2. AROMASIN [Suspect]
     Indication: BREAST CANCER
     Dates: start: 20050311
  3. VALSARTAN [Concomitant]
  4. PANTOPRAZOLE (PANTOPRAZOLE) [Concomitant]
  5. VERAPAMIL [Concomitant]
  6. LEVOTHYROXINE SODIUM [Concomitant]
  7. FULVESTRANT (FULVESTRANT) [Concomitant]

REACTIONS (8)
  - ARTHRALGIA [None]
  - BLOOD PRESSURE INCREASED [None]
  - CHEST WALL PAIN [None]
  - FATIGUE [None]
  - PNEUMONIA [None]
  - WEIGHT DECREASED [None]
  - WEIGHT INCREASED [None]
  - WHEEZING [None]
